FAERS Safety Report 9804710 (Version 1)
Quarter: 2014Q1

REPORT INFORMATION
  Report Type: Spontaneous
  Country: PT (occurrence: PT)
  Receive Date: 20140108
  Receipt Date: 20140108
  Transmission Date: 20141002
  Serious: Yes (Other)
  Sender: FDA-Public Use
  Company Number: PT-GILEAD-2014-0091217

PATIENT
  Age: 37 Year
  Sex: Male

DRUGS (6)
  1. TRUVADA [Suspect]
     Indication: HIV INFECTION
     Dosage: 1 DF, QD
     Route: 048
     Dates: start: 20131111, end: 20131127
  2. TEVAGRASTIM [Suspect]
     Indication: NEUTROPENIA
     Dosage: 30000000 IU, PRN
     Route: 058
     Dates: start: 20131112, end: 20131202
  3. PREZISTA [Concomitant]
     Indication: HIV INFECTION
     Route: 048
     Dates: start: 20131111, end: 20131118
  4. NORVIR [Concomitant]
     Indication: HIV INFECTION
     Route: 048
     Dates: start: 20131111, end: 20131126
  5. BACTRIM [Concomitant]
     Indication: ANTIFUNGAL PROPHYLAXIS
     Route: 048
     Dates: start: 20131107, end: 20131118
  6. FLOXIL                             /00239102/ [Concomitant]
     Indication: INFECTED SKIN ULCER
     Route: 048
     Dates: start: 20131111, end: 20131127

REACTIONS (3)
  - Erythema [Recovered/Resolved]
  - Pruritus [Recovered/Resolved]
  - Rash maculo-papular [Recovered/Resolved]
